FAERS Safety Report 22228469 (Version 5)
Quarter: 2024Q2

REPORT INFORMATION
  Report Type: Report from Study
  Country: US (occurrence: US)
  Receive Date: 20230419
  Receipt Date: 20240607
  Transmission Date: 20240716
  Serious: Yes (Hospitalization, Other)
  Sender: FDA-Public Use
  Company Number: US-KOREA IPSEN Pharma-2022-28344

PATIENT
  Age: 58 Year
  Sex: Female

DRUGS (6)
  1. SOMATULINE DEPOT [Suspect]
     Active Substance: LANREOTIDE ACETATE
     Indication: Carcinoid tumour
     Dosage: 120 MG EVERY 4 WEEKS
     Route: 058
     Dates: start: 201909
  2. METOPROLOL [Concomitant]
     Active Substance: METOPROLOL
     Indication: Hypertension
  3. AMLODIPINE [Concomitant]
     Active Substance: AMLODIPINE BESYLATE
     Indication: Hypertension
     Dates: start: 202208
  4. JARDIANCE [Concomitant]
     Active Substance: EMPAGLIFLOZIN
  5. CARVEDILOL [Concomitant]
     Active Substance: CARVEDILOL
  6. ALDACTONE [Concomitant]
     Active Substance: SPIRONOLACTONE

REACTIONS (4)
  - Malignant neoplasm progression [Not Recovered/Not Resolved]
  - Liver disorder [Unknown]
  - Pulmonary embolism [Not Recovered/Not Resolved]
  - Hypertension [Recovering/Resolving]

NARRATIVE: CASE EVENT DATE: 20221004
